FAERS Safety Report 5584083-1 (Version None)
Quarter: 2008Q1

REPORT INFORMATION
  Report Type: 
  Country: None (occurrence: None)
  Receive Date: 20080103
  Receipt Date: 20071220
  Transmission Date: 20080703
  Serious: Yes (Hospitalization, Other)
  Sender: FDA-Public Use
  Company Number: 2007BI017663

PATIENT
  Age: 60 Year
  Sex: Female

DRUGS (2)
  1. AVONEX [Suspect]
     Indication: MULTIPLE SCLEROSIS
     Dosage: 30 UG QW IM; IM
     Route: 030
     Dates: start: 20040801, end: 20070101
  2. AVONEX [Suspect]
     Indication: MULTIPLE SCLEROSIS
     Dosage: 30 UG QW IM; IM
     Route: 030
     Dates: start: 20070101

REACTIONS (11)
  - CHOLESTASIS [None]
  - GASTROOESOPHAGEAL REFLUX DISEASE [None]
  - HEPATIC ENZYME INCREASED [None]
  - INTERVERTEBRAL DISC DEGENERATION [None]
  - LIGAMENT SPRAIN [None]
  - LUMBAR SPINAL STENOSIS [None]
  - RECTAL PROLAPSE [None]
  - RECTOCELE REPAIR [None]
  - SCOLIOSIS [None]
  - SKIN CANCER [None]
  - SPINAL OSTEOARTHRITIS [None]
